FAERS Safety Report 11360145 (Version 6)
Quarter: 2021Q2

REPORT INFORMATION
  Report Type: Spontaneous
  Country: DE (occurrence: DE)
  Receive Date: 20150810
  Receipt Date: 20210616
  Transmission Date: 20210716
  Serious: Yes (Hospitalization, Other)
  Sender: FDA-Public Use
  Company Number: DE-AUROBINDO-AUR-APL-2015-06649

PATIENT
  Age: 93 Year
  Sex: Female

DRUGS (21)
  1. BROMAZANIL [Suspect]
     Active Substance: BROMAZEPAM
     Indication: RESTLESSNESS
  2. RISPERIDONE. [Suspect]
     Active Substance: RISPERIDONE
     Indication: AGITATION
  3. RISPERIDONE. [Suspect]
     Active Substance: RISPERIDONE
     Indication: RESTLESSNESS
  4. DOXEPIN [Suspect]
     Active Substance: DOXEPIN
     Indication: AGITATION
     Dosage: 25 MILLIGRAM, ONCE A DAY(10?10?25 MG)
     Route: 065
  5. BROMAZANIL [Suspect]
     Active Substance: BROMAZEPAM
     Indication: DEMENTIA
     Dosage: 4.5 MILLIGRAM
     Route: 065
  6. BROMAZANIL [Concomitant]
     Active Substance: BROMAZEPAM
     Indication: AGITATION
  7. RAMIPRIL. [Concomitant]
     Active Substance: RAMIPRIL
     Indication: PRODUCT USED FOR UNKNOWN INDICATION
     Dosage: 5 MILLIGRAM
     Route: 065
  8. DOXEPIN [Suspect]
     Active Substance: DOXEPIN
     Indication: ANXIETY
     Dosage: 10 MILLIGRAM, ONCE A DAY(10?10?25 MG )
     Route: 065
  9. ANASTROZOLE. [Concomitant]
     Active Substance: ANASTROZOLE
     Indication: BREAST CANCER
     Dosage: 1 MILLIGRAM
     Route: 016
  10. BUSPIRONE [Suspect]
     Active Substance: BUSPIRONE HYDROCHLORIDE
     Indication: PRODUCT USED FOR UNKNOWN INDICATION
     Dosage: 5 MILLIGRAM
     Route: 065
  11. BROMAZANIL [Suspect]
     Active Substance: BROMAZEPAM
     Indication: AGITATION
  12. BROMAZANIL [Concomitant]
     Active Substance: BROMAZEPAM
     Indication: IRRITABILITY
     Dosage: 6 MILLIGRAM
     Route: 065
  13. BROMAZANIL [Concomitant]
     Active Substance: BROMAZEPAM
     Indication: RESTLESSNESS
  14. DOXEPIN [Suspect]
     Active Substance: DOXEPIN
     Indication: RESTLESSNESS
  15. L?THYROXINE [Concomitant]
     Active Substance: LEVOTHYROXINE
     Indication: PRODUCT USED FOR UNKNOWN INDICATION
     Dosage: 75 MICROGRAM
     Route: 016
  16. DOXEPIN [Suspect]
     Active Substance: DOXEPIN
     Indication: IRRITABILITY
     Dosage: 25 MG ONCE AND 10 MG TWICE A DAY
     Route: 065
  17. ASPIRIN. [Concomitant]
     Active Substance: ASPIRIN
     Indication: PRODUCT USED FOR UNKNOWN INDICATION
     Dosage: 100 MILLIGRAM
     Route: 065
  18. RISPERIDONE. [Suspect]
     Active Substance: RISPERIDONE
     Indication: ANXIETY
     Dosage: 0.5 MILLIGRAM, 3 TIMES A DAY(0.5?0.5?0.5 MG  (0.5 MG THRICE A DAY) )
     Route: 065
  19. RISPERIDONE. [Suspect]
     Active Substance: RISPERIDONE
     Indication: IRRITABILITY
     Dosage: 1.5 MILLIGRAM, ONCE A DAY (0.5 MG, TID)
     Route: 065
  20. BROMAZANIL [Concomitant]
     Active Substance: BROMAZEPAM
     Indication: ANXIETY
     Dosage: 4.5 MILLIGRAM
     Route: 016
  21. LACTULOSE. [Concomitant]
     Active Substance: LACTULOSE
     Indication: PRODUCT USED FOR UNKNOWN INDICATION
     Dosage: 10 MILLILITER
     Route: 065

REACTIONS (6)
  - Somnolence [Recovered/Resolved]
  - Feeling cold [Recovered/Resolved]
  - Autonomic nervous system imbalance [Recovered/Resolved]
  - Disturbance in attention [Recovered/Resolved]
  - Hypothermia [Recovered/Resolved]
  - Body temperature increased [Recovered/Resolved]
